FAERS Safety Report 20197868 (Version 1)
Quarter: 2021Q4

REPORT INFORMATION
  Report Type: Report from Study
  Country: US (occurrence: US)
  Receive Date: 20211217
  Receipt Date: 20211217
  Transmission Date: 20220304
  Serious: Yes (Death)
  Sender: FDA-Public Use
  Company Number: US-JNJFOC-20211115705

PATIENT
  Sex: Male

DRUGS (1)
  1. MACITENTAN [Suspect]
     Active Substance: MACITENTAN
     Indication: Pulmonary arterial hypertension
     Route: 048

REACTIONS (4)
  - Cardiac arrest [Fatal]
  - Blood pressure fluctuation [Unknown]
  - Hypoacusis [Unknown]
  - Visual impairment [Unknown]
